FAERS Safety Report 8778159 (Version 2)
Quarter: 2012Q4

REPORT INFORMATION
  Report Type: 
  Country: AU (occurrence: AU)
  Receive Date: 20120912
  Receipt Date: 20120924
  Transmission Date: 20130627
  Serious: Yes (Other)
  Sender: FDA-Public Use
  Company Number: AU-JNJFOC-20120902111

PATIENT
  Sex: Female
  Weight: 74.6 kg

DRUGS (3)
  1. REMICADE [Suspect]
     Indication: CROHN^S DISEASE
     Route: 042
     Dates: start: 2007
  2. MERCAPTOPURINE [Suspect]
     Indication: CROHN^S DISEASE
     Dosage: possibly 2007
     Route: 048
  3. FOLIC ACID [Concomitant]
     Route: 048

REACTIONS (2)
  - Abortion spontaneous [Unknown]
  - Exposure during pregnancy [Unknown]
